FAERS Safety Report 9351193 (Version 1)
Quarter: 2013Q2

REPORT INFORMATION
  Report Type: Spontaneous
  Country: CA (occurrence: CA)
  Receive Date: 20130617
  Receipt Date: 20130617
  Transmission Date: 20140414
  Serious: Yes (Hospitalization, Other)
  Sender: FDA-Public Use
  Company Number: CA-PFIZER INC-2013176964

PATIENT
  Age: 53 Year
  Sex: Male

DRUGS (3)
  1. DILANTIN [Suspect]
     Indication: CONVULSION PROPHYLAXIS
     Dosage: 100 MG IN THE MORNING AND 200 MG IN THE EVENING
     Dates: start: 20130328
  2. DILANTIN [Suspect]
  3. HYZAAR [Concomitant]
     Indication: BLOOD PRESSURE
     Dosage: UNK

REACTIONS (2)
  - Convulsion [Unknown]
  - Drug level decreased [Unknown]
